FAERS Safety Report 13111879 (Version 2)
Quarter: 2017Q2

REPORT INFORMATION
  Report Type: Report from Study
  Country: CA (occurrence: CA)
  Receive Date: 20170113
  Receipt Date: 20170517
  Transmission Date: 20170830
  Serious: Yes (Hospitalization)
  Sender: FDA-Public Use
  Company Number: CA-ROCHE-1668555

PATIENT
  Age: 81 Year
  Sex: Female

DRUGS (17)
  1. ADVAIR HFA [Concomitant]
     Active Substance: FLUTICASONE PROPIONATE\SALMETEROL XINAFOATE
  2. DILTIAZEM. [Concomitant]
     Active Substance: DILTIAZEM
  3. ENTRESTO [Concomitant]
     Active Substance: SACUBITRIL\VALSARTAN
  4. PROLIA [Concomitant]
     Active Substance: DENOSUMAB
  5. ACETAMINOPHEN. [Concomitant]
     Active Substance: ACETAMINOPHEN
     Indication: PREMEDICATION
     Route: 048
     Dates: start: 20151124
  6. FLUOXETINE [Concomitant]
     Active Substance: FLUOXETINE HYDROCHLORIDE
  7. LIPITOR [Concomitant]
     Active Substance: ATORVASTATIN CALCIUM
  8. FUROSEMIDE. [Concomitant]
     Active Substance: FUROSEMIDE
  9. BECLOMETHASONE [Concomitant]
     Active Substance: BECLOMETHASONE
     Route: 045
  10. DIPHENHYDRAMINE HCL [Concomitant]
     Active Substance: DIPHENHYDRAMINE HYDROCHLORIDE
     Indication: PREMEDICATION
     Route: 048
     Dates: start: 20151124
  11. PREDNISONE. [Concomitant]
     Active Substance: PREDNISONE
  12. ACETYLSALICYLIC ACID [Concomitant]
     Active Substance: ASPIRIN
  13. RITUXAN [Suspect]
     Active Substance: RITUXIMAB
     Indication: RHEUMATOID ARTHRITIS
     Dosage: PREVIOUS RITUXAN INFUSION: 08/DEC/2015, 12/MAY/2017
     Route: 042
     Dates: start: 20151124
  14. METHYLPREDNISOLONE. [Concomitant]
     Active Substance: METHYLPREDNISOLONE
     Indication: PREMEDICATION
     Route: 042
     Dates: start: 20151124
  15. PLAQUENIL [Concomitant]
     Active Substance: HYDROXYCHLOROQUINE SULFATE
  16. RABEPRAZOLE [Concomitant]
     Active Substance: RABEPRAZOLE
  17. BISOPROLOL [Concomitant]
     Active Substance: BISOPROLOL

REACTIONS (9)
  - Cardiac failure congestive [Unknown]
  - Blood pressure increased [Unknown]
  - Hip fracture [Not Recovered/Not Resolved]
  - Swollen joint count increased [Not Recovered/Not Resolved]
  - Blood pressure fluctuation [Unknown]
  - Diarrhoea [Recovered/Resolved]
  - Musculoskeletal pain [Unknown]
  - Malaise [Unknown]
  - Abdominal discomfort [Recovered/Resolved]

NARRATIVE: CASE EVENT DATE: 20151124
